FAERS Safety Report 20077100 (Version 1)
Quarter: 2021Q4

REPORT INFORMATION
  Report Type: Spontaneous
  Country: FR (occurrence: FR)
  Receive Date: 20211116
  Receipt Date: 20211116
  Transmission Date: 20220304
  Serious: Yes (Hospitalization, Disabling, Congenital Anomaly, Other)
  Sender: FDA-Public Use
  Company Number: FR-ABBVIE-21K-056-4159270-00

PATIENT
  Sex: Female

DRUGS (1)
  1. VALPROATE SODIUM [Suspect]
     Active Substance: VALPROATE SODIUM
     Indication: Maternal exposure timing unspecified
     Route: 064

REACTIONS (41)
  - Disability [Unknown]
  - Loss of consciousness [Unknown]
  - Asthmatic crisis [Unknown]
  - Intellectual disability [Unknown]
  - Tuberous sclerosis complex [Unknown]
  - Hypertrophy [Unknown]
  - Anuria [Unknown]
  - Gastrooesophageal reflux disease [Unknown]
  - Arrhythmia [Unknown]
  - Epilepsy [Unknown]
  - Seizure [Unknown]
  - Asthenia [Unknown]
  - Vision blurred [Unknown]
  - Foetal exposure during pregnancy [Unknown]
  - Bronchiolitis [Unknown]
  - Syncope [Unknown]
  - Cognitive disorder [Unknown]
  - Speech disorder developmental [Unknown]
  - Behaviour disorder [Unknown]
  - Neonatal seizure [Unknown]
  - Central nervous system lesion [Unknown]
  - Psychomotor retardation [Unknown]
  - Growth retardation [Unknown]
  - Hypotonia [Unknown]
  - Bronchial disorder [Unknown]
  - Eye movement disorder [Unknown]
  - Tracheitis [Unknown]
  - Lung disorder [Unknown]
  - Tracheobronchitis [Unknown]
  - Tongue biting [Unknown]
  - Noninfective bronchitis [Unknown]
  - Laryngitis [Unknown]
  - Asthmatic crisis [Recovered/Resolved]
  - Asthmatic crisis [Recovered/Resolved]
  - Cough [Unknown]
  - Learning disorder [Unknown]
  - Headache [Unknown]
  - Ear infection [Unknown]
  - Hypertonia [Unknown]
  - Cough [Recovered/Resolved]
  - Neonatal hypoxia [Unknown]

NARRATIVE: CASE EVENT DATE: 20030403
